FAERS Safety Report 13216660 (Version 1)
Quarter: 2017Q1

REPORT INFORMATION
  Report Type: Other
  Country: US (occurrence: US)
  Receive Date: 20170210
  Receipt Date: 20170210
  Transmission Date: 20170428
  Serious: No
  Sender: FDA-Public Use
  Company Number: US-ACORDA-ACO_123997_2016

PATIENT
  Sex: Female
  Weight: 61.22 kg

DRUGS (7)
  1. ATIVAN [Concomitant]
     Active Substance: LORAZEPAM
     Indication: PRODUCT USED FOR UNKNOWN INDICATION
     Dosage: 0.5 MG, UNK
     Route: 065
  2. LEXAPRO [Concomitant]
     Active Substance: ESCITALOPRAM OXALATE
     Indication: DEPRESSION
     Dosage: 10 MG, 1/2 TAB DAILY
     Route: 048
     Dates: start: 2016
  3. BACLOFEN. [Concomitant]
     Active Substance: BACLOFEN
     Indication: PRODUCT USED FOR UNKNOWN INDICATION
     Dosage: UNK
     Route: 065
  4. AMBIEN [Concomitant]
     Active Substance: ZOLPIDEM TARTRATE
     Indication: PRODUCT USED FOR UNKNOWN INDICATION
     Dosage: 10 MG, UNK
     Route: 065
  5. XARELTO [Concomitant]
     Active Substance: RIVAROXABAN
     Indication: PRODUCT USED FOR UNKNOWN INDICATION
     Dosage: UNK
     Route: 065
  6. AMPYRA [Suspect]
     Active Substance: DALFAMPRIDINE
     Indication: GAIT DISTURBANCE
     Dosage: 10 MG, Q 12 HRS
     Route: 048
     Dates: start: 2016
  7. VITAMIN D [Concomitant]
     Active Substance: CHOLECALCIFEROL
     Indication: PRODUCT USED FOR UNKNOWN INDICATION
     Dosage: 5000 IU, UNK
     Route: 065
     Dates: start: 201603

REACTIONS (2)
  - Drug ineffective [Not Recovered/Not Resolved]
  - Musculoskeletal disorder [Unknown]
